FAERS Safety Report 7412321-9 (Version None)
Quarter: 2011Q2

REPORT INFORMATION
  Report Type: 
  Country: None (occurrence: None)
  Receive Date: 20110413
  Receipt Date: 20110401
  Transmission Date: 20111010
  Serious: Yes (Hospitalization, Other)
  Sender: FDA-Public Use
  Company Number: US-ELI_LILLY_AND_COMPANY-US201102005860

PATIENT
  Sex: Male
  Weight: 149.7 kg

DRUGS (14)
  1. ASPIRIN [Concomitant]
     Dosage: 81 MG, DAILY (1/D)
     Dates: start: 20100806
  2. SPIRONOLACTONE [Concomitant]
     Indication: DIURETIC THERAPY
     Dosage: 50 MG, 2/D
     Route: 048
     Dates: start: 19910101
  3. HYDROQUINONE [Concomitant]
     Indication: BLOOD PRESSURE
     Dosage: 20 MG, DAILY (1/D)
     Route: 048
     Dates: start: 20090101
  4. ASCORBIC ACID [Concomitant]
     Indication: SUPPLEMENTATION THERAPY
     Dosage: 1 D/F, DAILY (1/D)
     Route: 048
     Dates: start: 20030101
  5. PRASUGREL HYDROCHLORIDE [Suspect]
     Dosage: 10 MG, DAILY (1/D)
     Dates: start: 20100806
  6. SIMVASTATIN [Concomitant]
     Indication: BLOOD CHOLESTEROL
     Dosage: 40 MG, DAILY (1/D)
     Route: 048
     Dates: start: 20080101
  7. VITAMIN B-12 [Concomitant]
     Indication: SUPPLEMENTATION THERAPY
     Dosage: 1 D/F, DAILY (1/D)
     Route: 048
     Dates: start: 19990101
  8. ALLOPURINOL [Concomitant]
     Indication: GOUT
     Dosage: 300 MG, 2/D
     Route: 048
     Dates: start: 20030101
  9. ATENOLOL [Concomitant]
     Indication: BLOOD PRESSURE
     Dosage: 100 MG, DAILY (1/D)
     Route: 048
     Dates: start: 19910101
  10. TERAZOZIN [Concomitant]
     Indication: BENIGN PROSTATIC HYPERPLASIA
     Dosage: 5 MG, DAILY (1/D)
     Route: 048
     Dates: start: 20060101
  11. HYDROCHLOROTHIAZIDE [Concomitant]
     Indication: DIURETIC THERAPY
     Dosage: 25 MG, DAILY (1/D)
     Route: 048
     Dates: start: 19970101
  12. PRASUGREL HYDROCHLORIDE [Suspect]
     Indication: ACUTE CORONARY SYNDROME
     Dosage: 60 MG, ONCE
     Dates: start: 20100806, end: 20100806
  13. XYZAL [Concomitant]
     Indication: HYPERSENSITIVITY
     Dosage: 5 MG, DAILY (1/D)
     Route: 048
     Dates: start: 19910101
  14. PIROXICAM [Concomitant]
     Indication: ARTHRITIS
     Dosage: 20 MG, AS NEEDED
     Route: 048
     Dates: start: 20090101

REACTIONS (2)
  - VASCULAR PSEUDOANEURYSM [None]
  - ANGINA UNSTABLE [None]
